FAERS Safety Report 16749640 (Version 2)
Quarter: 2019Q3

REPORT INFORMATION
  Report Type: Spontaneous
  Country: JP (occurrence: JP)
  Receive Date: 20190828
  Receipt Date: 20190924
  Transmission Date: 20191005
  Serious: Yes (Hospitalization)
  Sender: FDA-Public Use
  Company Number: JP-MYLANLABS-2019M1079879

PATIENT
  Age: 36 Year
  Sex: Female
  Weight: 65.9 kg

DRUGS (6)
  1. PREDNISOLONE TABLETS 1MG ^PFIZER^ [Suspect]
     Active Substance: PREDNISOLONE
     Indication: GLOMERULONEPHRITIS MEMBRANOUS
     Dosage: 50 MILLIGRAM, QD
     Route: 065
     Dates: start: 2011
  2. MIZORIBINE TAB. 25MG ^PFIZER^ [Suspect]
     Active Substance: MIZORIBINE
     Indication: GLOMERULONEPHRITIS MEMBRANOUS
     Route: 065
     Dates: start: 2011
  3. PREDNISOLONE TABLETS 1MG ^PFIZER^ [Suspect]
     Active Substance: PREDNISOLONE
     Dosage: 40 MILLIGRAM, QD
     Route: 065
  4. PREDNISOLONE TABLETS 1MG ^PFIZER^ [Suspect]
     Active Substance: PREDNISOLONE
     Dosage: 60 MILLIGRAM, QD
     Route: 065
  5. CICLOSPORIN CAP. 10 MG ^PFIZER^ [Suspect]
     Active Substance: CYCLOSPORINE
     Indication: GLOMERULONEPHRITIS MEMBRANOUS
     Route: 065
     Dates: start: 2011
  6. SCOPOLAMINE [Concomitant]
     Active Substance: SCOPOLAMINE
     Indication: ANALGESIC THERAPY
     Route: 065
     Dates: start: 2011

REACTIONS (3)
  - Oedema [Recovered/Resolved]
  - Varicella zoster virus infection [Recovered/Resolved]
  - Disseminated intravascular coagulation [Recovering/Resolving]

NARRATIVE: CASE EVENT DATE: 2011
